FAERS Safety Report 4356565-1 (Version None)
Quarter: 2004Q2

REPORT INFORMATION
  Report Type: 
  Country: None (occurrence: None)
  Receive Date: 20040507
  Receipt Date: 20040419
  Transmission Date: 20050107
  Serious: Yes (Hospitalization)
  Sender: FDA-Public Use
  Company Number: FR_040403857

PATIENT
  Age: 48 Year
  Sex: Male

DRUGS (4)
  1. ZYPREXA [Suspect]
     Indication: AGITATION
     Dosage: 10 MG DAY
     Dates: start: 20040324, end: 20040324
  2. PAROXETINE HCL [Concomitant]
  3. ATARAX [Concomitant]
  4. TRANXENE [Concomitant]

REACTIONS (2)
  - APNOEA [None]
  - SEDATION [None]
